FAERS Safety Report 19974550 (Version 1)
Quarter: 2021Q4

REPORT INFORMATION
  Report Type: Spontaneous
  Country: DE (occurrence: DE)
  Receive Date: 20211020
  Receipt Date: 20211020
  Transmission Date: 20220303
  Serious: Yes (Hospitalization, Other)
  Sender: FDA-Public Use
  Company Number: DE-ASTRAZENECA-2020SE32714

PATIENT
  Age: 76 Year
  Sex: Female

DRUGS (77)
  1. BEVACIZUMAB [Suspect]
     Active Substance: BEVACIZUMAB
     Dosage: 1035 MG, SINGLE
     Route: 042
     Dates: start: 20191121, end: 20191121
  2. BEVACIZUMAB [Suspect]
     Active Substance: BEVACIZUMAB
     Dosage: 1020 MG, SINGLE
     Route: 042
     Dates: start: 20191212, end: 20191212
  3. BEVACIZUMAB [Suspect]
     Active Substance: BEVACIZUMAB
     Dosage: 1035 MG, SINGLE
     Route: 042
     Dates: start: 20200103, end: 20200103
  4. BEVACIZUMAB [Suspect]
     Active Substance: BEVACIZUMAB
     Dosage: 1012 MG, SINGLE
     Route: 042
     Dates: start: 20200130, end: 20200130
  5. BEVACIZUMAB [Suspect]
     Active Substance: BEVACIZUMAB
     Dosage: 1005 MG, SINGLE
     Route: 042
     Dates: start: 20200220, end: 20200220
  6. BEVACIZUMAB [Suspect]
     Active Substance: BEVACIZUMAB
     Dosage: 1005 MG, SINGLE
     Route: 042
     Dates: start: 20200312, end: 20200312
  7. BEVACIZUMAB [Suspect]
     Active Substance: BEVACIZUMAB
     Dosage: 1005 MG, SINGLE
     Route: 042
     Dates: start: 20200402, end: 20200402
  8. BEVACIZUMAB [Suspect]
     Active Substance: BEVACIZUMAB
     Dosage: 1035 MG, SINGLE
     Route: 042
     Dates: start: 20200423, end: 20200423
  9. BEVACIZUMAB [Suspect]
     Active Substance: BEVACIZUMAB
     Dosage: 1035 MG, SINGLE
     Route: 042
     Dates: start: 20200514, end: 20200514
  10. BEVACIZUMAB [Suspect]
     Active Substance: BEVACIZUMAB
     Dosage: 1035 MG, SINGLE
     Route: 042
     Dates: start: 20200604, end: 20200604
  11. BEVACIZUMAB [Suspect]
     Active Substance: BEVACIZUMAB
     Dosage: 1035 MG, SINGLE
     Route: 042
     Dates: start: 20200625, end: 20200625
  12. BEVACIZUMAB [Suspect]
     Active Substance: BEVACIZUMAB
     Dosage: 1035 MG, SINGLE
     Route: 042
     Dates: start: 20200716, end: 20200716
  13. BEVACIZUMAB [Suspect]
     Active Substance: BEVACIZUMAB
     Dosage: 1035 MG, SINGLE
     Route: 042
     Dates: start: 20200806, end: 20200806
  14. BEVACIZUMAB [Suspect]
     Active Substance: BEVACIZUMAB
     Dosage: 1035 MG, SINGLE
     Route: 042
     Dates: start: 20200828, end: 20200828
  15. BEVACIZUMAB [Suspect]
     Active Substance: BEVACIZUMAB
     Dosage: 1065 MG, SINGLE
     Route: 042
     Dates: start: 20201030, end: 20201030
  16. BEVACIZUMAB [Suspect]
     Active Substance: BEVACIZUMAB
     Dosage: 1065 MG, SINGLE
     Route: 042
     Dates: start: 20201120, end: 20201120
  17. BEVACIZUMAB [Suspect]
     Active Substance: BEVACIZUMAB
     Dosage: 1065 MG, SINGLE
     Route: 042
     Dates: start: 20201211, end: 20201211
  18. BEVACIZUMAB [Suspect]
     Active Substance: BEVACIZUMAB
     Dosage: 1065 MG, SINGLE
     Route: 042
     Dates: start: 20210108, end: 20210108
  19. BEVACIZUMAB [Suspect]
     Active Substance: BEVACIZUMAB
     Dosage: 1065 MG, SINGLE
     Route: 042
     Dates: start: 20210129, end: 20210129
  20. BEVACIZUMAB [Suspect]
     Active Substance: BEVACIZUMAB
     Dosage: 1065 MG, SINGLE
     Route: 042
     Dates: start: 20210219
  21. DURVALUMAB [Suspect]
     Active Substance: DURVALUMAB
     Indication: Ovarian cancer
     Dosage: 1120 MG, EVERY 3 WEEKS
     Route: 042
     Dates: start: 20191121, end: 20200103
  22. DURVALUMAB [Suspect]
     Active Substance: DURVALUMAB
     Dosage: 1120 MG, SINGLE
     Route: 042
     Dates: start: 20200130, end: 20200130
  23. DURVALUMAB [Suspect]
     Active Substance: DURVALUMAB
     Dosage: 1120 MG, SINGLE
     Route: 042
     Dates: start: 20200220, end: 20200220
  24. DURVALUMAB [Suspect]
     Active Substance: DURVALUMAB
     Dosage: 1120 MG, EVERY 3 WEEKS
     Route: 042
     Dates: start: 20200312, end: 20200806
  25. DURVALUMAB [Suspect]
     Active Substance: DURVALUMAB
     Dosage: 1120 MG, EVERY 3 WEEKS
     Route: 042
     Dates: start: 20200828, end: 20200918
  26. DURVALUMAB [Suspect]
     Active Substance: DURVALUMAB
     Dosage: 1120 MG, SINGLE
     Route: 042
     Dates: start: 20201030, end: 20201030
  27. DURVALUMAB [Suspect]
     Active Substance: DURVALUMAB
     Dosage: 1120 MG, EVERY 3 WEEKS
     Route: 042
     Dates: start: 20201120, end: 20201211
  28. DURVALUMAB [Suspect]
     Active Substance: DURVALUMAB
     Dosage: 1120 MG, EVERY 3 WEEKS
     Route: 042
     Dates: start: 20210108, end: 20210219
  29. DURVALUMAB [Suspect]
     Active Substance: DURVALUMAB
     Dosage: 1120 MG, SINGLE
     Route: 042
     Dates: start: 20210401, end: 20210401
  30. DURVALUMAB [Suspect]
     Active Substance: DURVALUMAB
     Dosage: 1120 MG, SINGLE
     Route: 042
     Dates: start: 20210423, end: 20210423
  31. DURVALUMAB [Suspect]
     Active Substance: DURVALUMAB
     Dosage: 1120 MG, SINGLE
     Route: 042
     Dates: start: 20210514, end: 20210514
  32. DURVALUMAB [Suspect]
     Active Substance: DURVALUMAB
     Dosage: 1120 MG, SINGLE
     Route: 042
     Dates: start: 20210604, end: 20210604
  33. DURVALUMAB [Suspect]
     Active Substance: DURVALUMAB
     Dosage: 1120 MG, SINGLE
     Route: 042
     Dates: start: 20210625
  34. OLAPARIB [Suspect]
     Active Substance: OLAPARIB
     Indication: Ovarian cancer
     Dosage: FREQ:12 H
     Route: 048
     Dates: start: 20200918
  35. OLAPARIB [Suspect]
     Active Substance: OLAPARIB
     Dosage: FREQ:12 H
     Route: 048
     Dates: start: 20200402, end: 20200917
  36. KELTICAN [CYANOCOBALAMIN;FOLIC ACID;URIDINE TRIPHOSPHATE SODIUM] [Concomitant]
     Indication: Peripheral sensory neuropathy
     Dosage: 25 MG, 1X/DAY
     Route: 048
     Dates: start: 20200210, end: 20200516
  37. MANIDIPINE [Concomitant]
     Active Substance: MANIDIPINE
     Indication: Hypertension
     Route: 048
     Dates: start: 20000101
  38. CANDESARTAN [Concomitant]
     Active Substance: CANDESARTAN
     Indication: Hypertension
     Route: 048
     Dates: start: 20000101
  39. BISOPROLOL [Concomitant]
     Active Substance: BISOPROLOL
     Indication: Hypertension
     Route: 048
     Dates: start: 19950101
  40. BISOPROLOL [Concomitant]
     Active Substance: BISOPROLOL
     Route: 048
     Dates: start: 20200302, end: 20200430
  41. MAGNESIUM [Concomitant]
     Active Substance: MAGNESIUM
     Indication: Electrolyte substitution therapy
     Route: 048
     Dates: start: 20150101
  42. APREPITANT [Concomitant]
     Active Substance: APREPITANT
     Indication: Vomiting
     Route: 042
     Dates: start: 20191031, end: 20200220
  43. RANOLAZINE [Concomitant]
     Active Substance: RANOLAZINE
     Indication: Coronary artery disease
     Route: 048
     Dates: start: 20150101
  44. HYDROCHLOROTHIAZIDE [Concomitant]
     Active Substance: HYDROCHLOROTHIAZIDE
     Indication: Hypertension
     Route: 048
     Dates: start: 19950101
  45. ATORVASTATIN [Concomitant]
     Active Substance: ATORVASTATIN
     Indication: Hypercholesterolaemia
     Route: 048
     Dates: start: 20100101
  46. AMINOPHYLLINE\QUININE SULFATE [Concomitant]
     Active Substance: AMINOPHYLLINE\QUININE SULFATE
     Indication: Muscle spasms
     Route: 048
     Dates: start: 20190601, end: 20200421
  47. RANITIDINE HYDROCHLORIDE [Concomitant]
     Active Substance: RANITIDINE HYDROCHLORIDE
     Indication: Chemotherapy side effect prophylaxis
     Route: 042
     Dates: start: 20191031, end: 20200220
  48. PACLITAXEL [Concomitant]
     Active Substance: PACLITAXEL
     Indication: Ovarian cancer
     Route: 042
     Dates: start: 20191212, end: 20191212
  49. PACLITAXEL [Concomitant]
     Active Substance: PACLITAXEL
     Route: 042
     Dates: start: 20191121, end: 20191121
  50. PACLITAXEL [Concomitant]
     Active Substance: PACLITAXEL
     Route: 042
     Dates: start: 20200220, end: 20200220
  51. PACLITAXEL [Concomitant]
     Active Substance: PACLITAXEL
     Route: 042
     Dates: start: 20191031, end: 20191031
  52. PACLITAXEL [Concomitant]
     Active Substance: PACLITAXEL
     Route: 042
     Dates: start: 20200130, end: 20200130
  53. PACLITAXEL [Concomitant]
     Active Substance: PACLITAXEL
     Route: 042
     Dates: start: 20200103, end: 20200103
  54. PACLITAXEL [Concomitant]
     Active Substance: PACLITAXEL
     Route: 042
     Dates: start: 20191212, end: 20191212
  55. PACLITAXEL [Concomitant]
     Active Substance: PACLITAXEL
     Route: 042
     Dates: start: 20191031, end: 20191031
  56. PACLITAXEL [Concomitant]
     Active Substance: PACLITAXEL
     Route: 042
     Dates: start: 20200103, end: 20200103
  57. PACLITAXEL [Concomitant]
     Active Substance: PACLITAXEL
     Route: 042
     Dates: start: 20191121, end: 20191121
  58. PACLITAXEL [Concomitant]
     Active Substance: PACLITAXEL
     Route: 042
     Dates: start: 20200130, end: 20200130
  59. PACLITAXEL [Concomitant]
     Active Substance: PACLITAXEL
     Route: 042
     Dates: start: 20200220, end: 20200220
  60. DEXAMETHASONE [Concomitant]
     Active Substance: DEXAMETHASONE
     Indication: Vomiting
     Route: 042
     Dates: start: 20191031, end: 20200220
  61. CARBOPLATIN [Concomitant]
     Active Substance: CARBOPLATIN
     Indication: Ovarian cancer
     Route: 042
     Dates: start: 20191121, end: 20191121
  62. CARBOPLATIN [Concomitant]
     Active Substance: CARBOPLATIN
     Route: 042
     Dates: start: 20200220, end: 20200220
  63. CARBOPLATIN [Concomitant]
     Active Substance: CARBOPLATIN
     Route: 042
     Dates: start: 20191031, end: 20191031
  64. CARBOPLATIN [Concomitant]
     Active Substance: CARBOPLATIN
     Route: 042
     Dates: start: 20200130, end: 20200130
  65. CARBOPLATIN [Concomitant]
     Active Substance: CARBOPLATIN
     Route: 042
     Dates: start: 20191212, end: 20191212
  66. CARBOPLATIN [Concomitant]
     Active Substance: CARBOPLATIN
     Route: 042
     Dates: start: 20200103, end: 20200103
  67. CARBOPLATIN [Concomitant]
     Active Substance: CARBOPLATIN
     Route: 042
     Dates: start: 20191121, end: 20191121
  68. CARBOPLATIN [Concomitant]
     Active Substance: CARBOPLATIN
     Route: 042
     Dates: start: 20191212, end: 20191212
  69. CARBOPLATIN [Concomitant]
     Active Substance: CARBOPLATIN
     Route: 042
     Dates: start: 20200220, end: 20200220
  70. CARBOPLATIN [Concomitant]
     Active Substance: CARBOPLATIN
     Route: 042
     Dates: start: 20200130, end: 20200130
  71. CARBOPLATIN [Concomitant]
     Active Substance: CARBOPLATIN
     Route: 042
     Dates: start: 20200103, end: 20200103
  72. CARBOPLATIN [Concomitant]
     Active Substance: CARBOPLATIN
     Route: 042
     Dates: start: 20191031, end: 20191031
  73. CLEMASTINE [Concomitant]
     Active Substance: CLEMASTINE
     Indication: Allergy prophylaxis
     Route: 042
     Dates: start: 20191031, end: 20200220
  74. ONDANSETRON [Concomitant]
     Active Substance: ONDANSETRON
     Indication: Vomiting
     Route: 042
     Dates: start: 20191031, end: 20200220
  75. METAMIZOLE [Concomitant]
     Active Substance: METAMIZOLE
     Indication: Neuralgia
     Route: 048
     Dates: start: 20201211
  76. METAMIZOLE [Concomitant]
     Active Substance: METAMIZOLE
     Route: 048
     Dates: start: 20201210, end: 20201210
  77. METAMIZOLE [Concomitant]
     Active Substance: METAMIZOLE
     Route: 048
     Dates: start: 20201210, end: 20201210

REACTIONS (2)
  - Tachycardia [Recovered/Resolved]
  - Mitral valve incompetence [Not Recovered/Not Resolved]

NARRATIVE: CASE EVENT DATE: 20200302
